FAERS Safety Report 11845813 (Version 5)
Quarter: 2019Q2

REPORT INFORMATION
  Report Type: Spontaneous
  Country: US (occurrence: US)
  Receive Date: 20151217
  Receipt Date: 20190424
  Transmission Date: 20190711
  Serious: No
  Sender: FDA-Public Use
  Company Number: US-PFIZER INC-2015445526

PATIENT
  Age: 49 Year
  Sex: Female

DRUGS (4)
  1. EFFEXOR XR [Suspect]
     Active Substance: VENLAFAXINE HYDROCHLORIDE
     Indication: SYSTEMIC LUPUS ERYTHEMATOSUS
     Dosage: 225 MG, DAILY (75MG, 3 ORALLY DAILY) (3 CAPSULE WITH FOOD ONCE A DAY ORALLY)
     Route: 048
  2. RELPAX [Suspect]
     Active Substance: ELETRIPTAN HYDROBROMIDE
     Indication: SYSTEMIC LUPUS ERYTHEMATOSUS
     Dosage: 1 DF, AS NEEDED
     Route: 048
  3. SKELAXIN [Suspect]
     Active Substance: METAXALONE
     Indication: SYSTEMIC LUPUS ERYTHEMATOSUS
     Dosage: 800 MG, 3X/DAY
     Route: 048
  4. CELEBREX [Suspect]
     Active Substance: CELECOXIB
     Indication: SYSTEMIC LUPUS ERYTHEMATOSUS
     Dosage: 1 DF, 2X/DAY WITH FOOD
     Route: 048

REACTIONS (2)
  - Intentional product use issue [Unknown]
  - Product use in unapproved indication [Unknown]
